FAERS Safety Report 11087714 (Version 2)
Quarter: 2015Q2

REPORT INFORMATION
  Report Type: Spontaneous
  Country: CR (occurrence: CR)
  Receive Date: 20150504
  Receipt Date: 20150507
  Transmission Date: 20150821
  Serious: Yes (Death)
  Sender: FDA-Public Use
  Company Number: CR-PFIZER INC-2015149444

PATIENT
  Age: 43 Year
  Sex: Male

DRUGS (2)
  1. ECALTA [Suspect]
     Active Substance: ANIDULAFUNGIN
     Dosage: UNK
  2. ECALTA [Suspect]
     Active Substance: ANIDULAFUNGIN
     Indication: ABDOMINAL SEPSIS
     Dosage: UNK

REACTIONS (1)
  - Arterial haemorrhage [Fatal]

NARRATIVE: CASE EVENT DATE: 20150402
